FAERS Safety Report 5454855-2 (Version None)
Quarter: 2007Q3

REPORT INFORMATION
  Report Type: 
  Country: None (occurrence: None)
  Receive Date: 20070917
  Receipt Date: 20061027
  Transmission Date: 20080115
  Serious: No
  Sender: FDA-Public Use
  Company Number: US-ASTRAZENECA-2006UW19204

PATIENT
  Age: 11393 Day
  Sex: Female

DRUGS (4)
  1. SEROQUEL [Suspect]
     Indication: BIPOLAR II DISORDER
     Route: 048
     Dates: start: 20060613
  2. LAMICTAL [Interacting]
     Indication: BIPOLAR DISORDER
     Route: 048
     Dates: start: 20060613
  3. KLONOPIN [Concomitant]
     Indication: ANXIETY
     Route: 048
     Dates: start: 20060619
  4. PAXIL [Concomitant]

REACTIONS (3)
  - AKATHISIA [None]
  - DRUG INTERACTION [None]
  - RASH [None]
